FAERS Safety Report 24403969 (Version 2)
Quarter: 2024Q4

REPORT INFORMATION
  Report Type: Spontaneous
  Country: JP (occurrence: JP)
  Receive Date: 20241007
  Receipt Date: 20241219
  Transmission Date: 20250115
  Serious: Yes (Death)
  Sender: NOVARTIS
  Company Number: JP-002147023-NVSJ2024JP011708

PATIENT
  Age: 75 Year
  Sex: Male
  Weight: 40 kg

DRUGS (2)
  1. TAFINLAR [Suspect]
     Active Substance: DABRAFENIB MESYLATE
     Indication: Anaplastic thyroid cancer
     Dosage: UNK
     Route: 048
     Dates: start: 202405
  2. MEKINIST [Suspect]
     Active Substance: TRAMETINIB DIMETHYL SULFOXIDE
     Indication: Anaplastic thyroid cancer
     Dosage: UNK
     Route: 048
     Dates: start: 202405

REACTIONS (4)
  - Anaplastic thyroid cancer [Fatal]
  - Malignant neoplasm progression [Fatal]
  - Decreased appetite [Unknown]
  - Decreased activity [Unknown]

NARRATIVE: CASE EVENT DATE: 20240601
